FAERS Safety Report 9449611 (Version 1)
Quarter: 2013Q3

REPORT INFORMATION
  Report Type: Spontaneous
  Country: US (occurrence: US)
  Receive Date: 20130809
  Receipt Date: 20130809
  Transmission Date: 20140515
  Serious: No
  Sender: FDA-Public Use
  Company Number: US-PFIZER INC-2013230489

PATIENT
  Age: 39 Year
  Sex: Female
  Weight: 150 kg

DRUGS (5)
  1. NEURONTIN [Suspect]
     Indication: PAIN
     Dosage: UNK, THREE OR FOUR TIMES A DAY
     Dates: start: 201112, end: 201211
  2. NEURONTIN [Suspect]
     Indication: NERVE COMPRESSION
  3. SAVELLA [Suspect]
     Indication: PAIN
     Dosage: 50 MG, 2X/DAY
  4. METHADONE [Suspect]
     Indication: PAIN
     Dosage: 20 MG IN MORNING AND 10 MG IN NIGHT, 2X/DAY
  5. METHADONE [Suspect]
     Indication: NERVE COMPRESSION

REACTIONS (4)
  - Photosensitivity reaction [Not Recovered/Not Resolved]
  - Sunburn [Not Recovered/Not Resolved]
  - Skin lesion [Not Recovered/Not Resolved]
  - Drug ineffective [Unknown]
